FAERS Safety Report 4885142-9 (Version None)
Quarter: 2006Q1

REPORT INFORMATION
  Report Type: 
  Country: None (occurrence: None)
  Receive Date: 20060117
  Receipt Date: 20060109
  Transmission Date: 20060701
  Serious: Yes (Other)
  Sender: FDA-Public Use
  Company Number: 200513831BCC

PATIENT
  Age: 84 Year
  Sex: Male
  Weight: 59.8748 kg

DRUGS (5)
  1. ALEVE (CAPLET) [Suspect]
     Indication: ANALGESIC EFFECT
     Dosage: 880 MG, ONCE, ORAL
     Route: 048
     Dates: start: 20050922
  2. BENICAR HCT [Concomitant]
  3. ENALADEX [Concomitant]
  4. QUINNE SULFATE [Concomitant]
  5. VITAMINS [Concomitant]

REACTIONS (5)
  - ANXIETY [None]
  - BLOOD PRESSURE INCREASED [None]
  - HEART RATE INCREASED [None]
  - INCORRECT DOSE ADMINISTERED [None]
  - OVERDOSE [None]
